FAERS Safety Report 4609184-3 (Version None)
Quarter: 2005Q1

REPORT INFORMATION
  Report Type: 
  Country: None (occurrence: None)
  Receive Date: 20050314
  Receipt Date: 20050303
  Transmission Date: 20050727
  Serious: Yes (Life-Threatening, Hospitalization)
  Sender: FDA-Public Use
  Company Number: GRP05000045

PATIENT
  Age: 72 Year
  Sex: Female
  Weight: 54 kg

DRUGS (5)
  1. ACTONEL [Suspect]
     Indication: OSTEOARTHRITIS
     Dosage: 35 MG, 1/WEEK, ORAL
     Route: 048
     Dates: start: 20041025, end: 20041101
  2. NOVALGIN /SCH/(METAMIZOLE SODIUM MONOHYDRATE) [Concomitant]
  3. IBUPROFEN [Concomitant]
  4. RANITIDINE [Concomitant]
  5. HOMEOPATIC PREPARATION [Concomitant]

REACTIONS (16)
  - ABDOMINAL PAIN [None]
  - C-REACTIVE PROTEIN INCREASED [None]
  - CARBOHYDRATE ANTIGEN 19-9 INCREASED [None]
  - CHEST PAIN [None]
  - GENERAL PHYSICAL HEALTH DETERIORATION [None]
  - HEPATIC ENZYME INCREASED [None]
  - HEPATIC NECROSIS [None]
  - HEPATOCELLULAR DAMAGE [None]
  - HEPATOTOXICITY [None]
  - HERPES ZOSTER [None]
  - LIPASE INCREASED [None]
  - NAUSEA [None]
  - PANCREATIC PSEUDOCYST [None]
  - PANCREATITIS [None]
  - TRANSAMINASES INCREASED [None]
  - VOMITING [None]
